FAERS Safety Report 7735275-4 (Version None)
Quarter: 2011Q3

REPORT INFORMATION
  Report Type: 
  Country: None (occurrence: None)
  Receive Date: 20110907
  Receipt Date: 20110829
  Transmission Date: 20111222
  Serious: Yes (Death, Congenital Anomaly)
  Sender: FDA-Public Use
  Company Number: US-ABBOTT-11P-163-0847558-00

PATIENT
  Sex: Male
  Weight: 0.63 kg

DRUGS (1)
  1. KALETRA [Suspect]
     Indication: MATERNAL EXPOSURE DURING PREGNANCY
     Route: 064

REACTIONS (5)
  - LOW SET EARS [None]
  - LIMB MALFORMATION [None]
  - EXOMPHALOS [None]
  - DYSMORPHISM [None]
  - CAUDAL REGRESSION SYNDROME [None]
